FAERS Safety Report 14853991 (Version 1)
Quarter: 2018Q2

REPORT INFORMATION
  Report Type: Spontaneous
  Country: FR (occurrence: FR)
  Receive Date: 20180507
  Receipt Date: 20180507
  Transmission Date: 20180711
  Serious: Yes (Other)
  Sender: FDA-Public Use
  Company Number: PHHY2018FR072574

PATIENT
  Age: 12 Year
  Sex: Female

DRUGS (1)
  1. GRANULOCYTE COLONY STIMULATING FACTOR [Suspect]
     Active Substance: GRANULOCYTE COLONY-STIMULATING FACTOR NOS
     Indication: INFANTILE GENETIC AGRANULOCYTOSIS
     Route: 065

REACTIONS (1)
  - Acute lymphocytic leukaemia [Unknown]
